FAERS Safety Report 7509716-1 (Version None)
Quarter: 2011Q2

REPORT INFORMATION
  Report Type: 
  Country: None (occurrence: None)
  Receive Date: 20110527
  Receipt Date: 20110524
  Transmission Date: 20111010
  Serious: Yes (Life-Threatening, Hospitalization)
  Sender: FDA-Public Use
  Company Number: US-MERCK-1101USA03274

PATIENT
  Age: 60 Year
  Sex: Female
  Weight: 66 kg

DRUGS (5)
  1. CARBOPLATIN [Concomitant]
     Route: 065
     Dates: start: 20030609, end: 20030609
  2. NEUPOGEN [Concomitant]
     Route: 065
     Dates: start: 20030531, end: 20030531
  3. INVANZ [Suspect]
     Indication: OVARIAN CANCER
     Route: 065
     Dates: start: 20030314, end: 20030705
  4. NEULASTA [Suspect]
     Indication: CHEMOTHERAPY
     Route: 058
     Dates: start: 20030401, end: 20030613
  5. PACLITAXEL [Concomitant]
     Route: 065
     Dates: start: 20030609, end: 20030609

REACTIONS (1)
  - FEBRILE NEUTROPENIA [None]
